FAERS Safety Report 20058349 (Version 3)
Quarter: 2022Q4

REPORT INFORMATION
  Report Type: Report from Study
  Country: US (occurrence: US)
  Receive Date: 20211111
  Receipt Date: 20221025
  Transmission Date: 20230112
  Serious: Yes (Other)
  Sender: FDA-Public Use
  Company Number: US-PFIZER INC-202101219141

PATIENT
  Age: 53 Year
  Sex: Male

DRUGS (3)
  1. BOSULIF [Suspect]
     Active Substance: BOSUTINIB MONOHYDRATE
     Indication: Chronic myeloid leukaemia
     Dosage: 200 MG (TAKE 2 TABLETS), DAILY WITH FOOD
     Route: 048
  2. BOSULIF [Suspect]
     Active Substance: BOSUTINIB MONOHYDRATE
     Dosage: INCREASE DOSE BY A 1 TABLET (100 MG) EVERY 2 WEEKS IF TOLERATED TO A GOAL OF 4 TABLETS (400MG)
     Route: 048
  3. LORAZEPAM [Concomitant]
     Active Substance: LORAZEPAM
     Dosage: UNK

REACTIONS (4)
  - Pancreatitis [Not Recovered/Not Resolved]
  - Abdominal pain [Unknown]
  - Constipation [Recovering/Resolving]
  - Fatigue [Unknown]
